FAERS Safety Report 6579770-2 (Version None)
Quarter: 2010Q1

REPORT INFORMATION
  Report Type: 
  Country: None (occurrence: None)
  Receive Date: 20100212
  Receipt Date: 20100202
  Transmission Date: 20100710
  Serious: Yes (Hospitalization)
  Sender: FDA-Public Use
  Company Number: B0620813A

PATIENT
  Sex: Female

DRUGS (6)
  1. PAXIL [Suspect]
     Indication: DEPRESSION
     Dosage: 20MG PER DAY
     Dates: start: 20091207, end: 20091223
  2. AMOBAN [Suspect]
     Indication: INSOMNIA
     Dosage: 7.5MG PER DAY
     Dates: start: 20091202, end: 20091223
  3. DOGMATYL [Concomitant]
     Indication: DEPRESSION
     Dosage: 150MG PER DAY
     Dates: start: 20091202, end: 20091222
  4. LAXOBERON [Concomitant]
     Indication: CONSTIPATION
     Dosage: 7.5MG PER DAY
     Dates: start: 20091206, end: 20091230
  5. PANTETHINE [Concomitant]
     Indication: CONSTIPATION
     Dosage: 3G PER DAY
     Dates: start: 20091210, end: 20091230
  6. MAGNESIUM OXIDE [Concomitant]
     Indication: CONSTIPATION
     Dosage: 1.5G PER DAY
     Dates: start: 20091210, end: 20091230

REACTIONS (8)
  - APNOEA [None]
  - DRUG EXPOSURE DURING PREGNANCY [None]
  - DRUG EXPOSURE VIA BREAST MILK [None]
  - DRUG WITHDRAWAL SYNDROME NEONATAL [None]
  - DYSKINESIA NEONATAL [None]
  - IRRITABILITY [None]
  - JOINT ANKYLOSIS [None]
  - NEONATAL RESPIRATORY ARREST [None]
